FAERS Safety Report 5956467-0 (Version None)
Quarter: 2008Q4

REPORT INFORMATION
  Report Type: 
  Country: None (occurrence: None)
  Receive Date: 20081114
  Receipt Date: 20081114
  Transmission Date: 20090506
  Serious: Yes (Life-Threatening, Hospitalization)
  Sender: FDA-Public Use
  Company Number: None

PATIENT
  Age: 33 Year
  Sex: Female
  Weight: 81.6475 kg

DRUGS (5)
  1. PROVENTIL-HFA [Suspect]
     Indication: ASTHMA
     Dosage: 2 PUFFS EVERY 4  4-7 PUFFS EV FEW HR INHAL
     Route: 055
     Dates: start: 20070901, end: 20081113
  2. PROVENTIL-HFA [Suspect]
     Indication: CHRONIC OBSTRUCTIVE PULMONARY DISEASE
     Dosage: 2 PUFFS EVERY 4  4-7 PUFFS EV FEW HR INHAL
     Route: 055
     Dates: start: 20070901, end: 20081113
  3. PROAIR HFA [Suspect]
     Indication: ASTHMA
     Dosage: 2 PUFFS EVERY 4 HOURS 4-7 PUFFS EV FEW HRS INHAL
     Route: 055
     Dates: start: 20070610, end: 20070901
  4. PROAIR HFA [Suspect]
     Indication: CHRONIC OBSTRUCTIVE PULMONARY DISEASE
     Dosage: 2 PUFFS EVERY 4 HOURS 4-7 PUFFS EV FEW HRS INHAL
     Route: 055
     Dates: start: 20070610, end: 20070901
  5. XOPENX HFA [Concomitant]

REACTIONS (3)
  - DRUG EXPOSURE DURING PREGNANCY [None]
  - DRUG INEFFECTIVE [None]
  - RESPIRATORY DISORDER [None]
